FAERS Safety Report 22254529 (Version 4)
Quarter: 2023Q2

REPORT INFORMATION
  Report Type: Report from Study
  Country: US (occurrence: US)
  Receive Date: 20230426
  Receipt Date: 20230629
  Transmission Date: 20230721
  Serious: Yes (Other)
  Sender: FDA-Public Use
  Company Number: US-002147023-NVSC2023US091128

PATIENT
  Sex: Female

DRUGS (4)
  1. COSENTYX [Suspect]
     Active Substance: SECUKINUMAB
     Indication: Psoriasis
     Dosage: 150 MG
     Route: 065
  2. COSENTYX [Suspect]
     Active Substance: SECUKINUMAB
     Dosage: 300 MG
     Route: 065
  3. PROPRANOLOL [Suspect]
     Active Substance: PROPRANOLOL HYDROCHLORIDE
     Indication: Psoriasis
     Dosage: 20 MG, QD
     Route: 048
  4. OTEZLA [Concomitant]
     Active Substance: APREMILAST
     Indication: Product used for unknown indication
     Dosage: UNK
     Route: 065

REACTIONS (18)
  - Psoriatic arthropathy [Unknown]
  - Melanocytic naevus [Unknown]
  - Macule [Unknown]
  - Papule [Unknown]
  - Dysplastic naevus [Unknown]
  - Neoplasm skin [Unknown]
  - Photodermatosis [Unknown]
  - Tenderness [Unknown]
  - Pruritus [Unknown]
  - Skin lesion [Unknown]
  - Keloid scar [Unknown]
  - Juvenile melanoma benign [Unknown]
  - Arthralgia [Unknown]
  - Arthritis [Unknown]
  - Psoriasis [Unknown]
  - Skin exfoliation [Unknown]
  - Drug ineffective [Unknown]
  - Product use in unapproved indication [Unknown]
